FAERS Safety Report 9715730 (Version 7)
Quarter: 2014Q1

REPORT INFORMATION
  Report Type: Spontaneous
  Country: US (occurrence: US)
  Receive Date: 20131127
  Receipt Date: 20140203
  Transmission Date: 20141002
  Serious: Yes (Death)
  Sender: FDA-Public Use
  Company Number: US-JNJFOC-20131113015

PATIENT
  Sex: Male
  Weight: 54.89 kg

DRUGS (11)
  1. REMICADE [Suspect]
     Indication: COLITIS ULCERATIVE
     Route: 042
     Dates: start: 200908, end: 201104
  2. REMICADE [Suspect]
     Indication: COLITIS ULCERATIVE
     Route: 042
     Dates: start: 20130813, end: 20131113
  3. REMICADE [Suspect]
     Indication: CROHN^S DISEASE
     Route: 042
     Dates: start: 200908, end: 201104
  4. REMICADE [Suspect]
     Indication: CROHN^S DISEASE
     Route: 042
     Dates: start: 20130813, end: 20131113
  5. HUMIRA [Suspect]
     Indication: PRODUCT USED FOR UNKNOWN INDICATION
     Dosage: APPROXIMATELY 55 DOSES
     Route: 065
     Dates: start: 201104, end: 201305
  6. ADVAIR [Concomitant]
     Indication: ASTHMA
     Route: 055
  7. BALSALAZIDE [Concomitant]
     Indication: CROHN^S DISEASE
     Route: 048
  8. OMEPRAZOLE [Concomitant]
     Indication: GASTROOESOPHAGEAL REFLUX DISEASE
     Route: 048
  9. PREDNISONE [Concomitant]
     Indication: CROHN^S DISEASE
     Route: 048
     Dates: start: 2008
  10. OXYCODONE [Concomitant]
     Indication: PAIN
     Route: 048
  11. 6-MP [Concomitant]
     Route: 065
     Dates: start: 2009, end: 2013

REACTIONS (1)
  - Leukaemia [Fatal]
